FAERS Safety Report 7907817-7 (Version None)
Quarter: 2011Q4

REPORT INFORMATION
  Report Type: 
  Country: None (occurrence: None)
  Receive Date: 20111110
  Receipt Date: 20111107
  Transmission Date: 20120403
  Serious: Yes (Other)
  Sender: FDA-Public Use
  Company Number: BR-PFIZER INC-2011272524

PATIENT
  Sex: Female

DRUGS (12)
  1. ATACAND [Concomitant]
     Indication: HYPERTENSION
     Dosage: UNK
  2. NEBIVOLOL HCL [Concomitant]
     Indication: HYPERTENSION
     Dosage: UNK
  3. CLONAZEPAM [Concomitant]
     Indication: SLEEP DISORDER
     Dosage: UNK
  4. ZOLPIDEM TARTRATE [Suspect]
     Indication: SLEEP DISORDER
     Dosage: UNK
     Dates: end: 20111105
  5. METFORMIN HYDROCHLORIDE [Concomitant]
     Indication: DIABETES MELLITUS
     Dosage: UNK
  6. SINVACOR [Concomitant]
     Indication: BLOOD CHOLESTEROL INCREASED
     Dosage: UNK
  7. LYRICA [Suspect]
     Indication: SLEEP DISORDER
     Dosage: 75 MG, 1X/DAY
     Route: 048
     Dates: start: 20110901
  8. NEXIUM [Concomitant]
     Indication: HYPERTENSION
     Dosage: UNK
  9. LYRICA [Suspect]
     Indication: PAIN IN EXTREMITY
     Dosage: 150 MG, UNK
     Dates: start: 20111031, end: 20111105
  10. INDAPAMIDE [Concomitant]
     Indication: HYPERTENSION
     Dosage: UNK
  11. RILAN [Concomitant]
     Indication: RHINITIS
     Dosage: UNK
  12. ALDACTONE [Concomitant]
     Indication: HYPERTENSION
     Dosage: UNK

REACTIONS (6)
  - CHEST DISCOMFORT [None]
  - HYPERTENSION [None]
  - THROAT TIGHTNESS [None]
  - VISION BLURRED [None]
  - DYSPNOEA [None]
  - VERTIGO [None]
